FAERS Safety Report 7014424-X (Version None)
Quarter: 2010Q3

REPORT INFORMATION
  Report Type: 
  Country: None (occurrence: None)
  Receive Date: 20100927
  Receipt Date: 20100917
  Transmission Date: 20110219
  Serious: No
  Sender: FDA-Public Use
  Company Number: US-MYLANLABS-2010S1014455

PATIENT
  Age: 64 Year
  Sex: Female

DRUGS (2)
  1. CARVEDILOL [Suspect]
     Indication: CARDIOMYOPATHY
     Route: 048
     Dates: start: 20100224
  2. ASPIRIN [Concomitant]

REACTIONS (1)
  - ALOPECIA [None]
